FAERS Safety Report 21585811 (Version 1)
Quarter: 2022Q4

REPORT INFORMATION
  Report Type: Spontaneous
  Country: FI (occurrence: FI)
  Receive Date: 20221111
  Receipt Date: 20221111
  Transmission Date: 20230112
  Serious: Yes (Hospitalization)
  Sender: FDA-Public Use
  Company Number: None

PATIENT
  Age: 3 Year
  Sex: Female

DRUGS (1)
  1. AMOXICILLIN [Suspect]
     Active Substance: AMOXICILLIN
     Indication: Otitis media
     Dosage: 7 ML DAILY; 7,ML,DAILY,DURATION 8 DAYS.
     Dates: start: 20221002, end: 20221009

REACTIONS (3)
  - Serum sickness-like reaction [Recovering/Resolving]
  - Inflammatory marker increased [Recovering/Resolving]
  - Coagulation test abnormal [Recovering/Resolving]

NARRATIVE: CASE EVENT DATE: 20221009
